FAERS Safety Report 6821662-5 (Version None)
Quarter: 2010Q3

REPORT INFORMATION
  Report Type: 
  Country: None (occurrence: None)
  Receive Date: 20100707
  Receipt Date: 20090218
  Transmission Date: 20110219
  Serious: No
  Sender: FDA-Public Use
  Company Number: US-PFIZER INC-2009172659

PATIENT
  Sex: Female

DRUGS (4)
  1. ZOLOFT [Suspect]
  2. ARICEPT [Suspect]
  3. NAMENDA [Suspect]
  4. ACTONEL [Suspect]

REACTIONS (1)
  - TINNITUS [None]
